FAERS Safety Report 17593371 (Version 1)
Quarter: 2020Q1

REPORT INFORMATION
  Report Type: Spontaneous
  Country: IS (occurrence: IS)
  Receive Date: 20200327
  Receipt Date: 20200327
  Transmission Date: 20200409
  Serious: No
  Sender: FDA-Public Use
  Company Number: IS-TOLMAR, INC.-20IS020147

PATIENT
  Sex: Male

DRUGS (1)
  1. ELIGARD [Suspect]
     Active Substance: LEUPROLIDE ACETATE
     Indication: PROSTATE CANCER
     Dosage: 45 MG, Q 6 MONTH
     Route: 065

REACTIONS (5)
  - Product dose omission [None]
  - Product availability issue [None]
  - Product quality issue [None]
  - Wrong technique in product usage process [None]
  - Intercepted product preparation error [None]
